FAERS Safety Report 6544571-8 (Version None)
Quarter: 2010Q1

REPORT INFORMATION
  Report Type: 
  Country: None (occurrence: None)
  Receive Date: 20100121
  Receipt Date: 20100111
  Transmission Date: 20100710
  Serious: Yes (Hospitalization)
  Sender: FDA-Public Use
  Company Number: IL-MEDIMMUNE-MEDI-0010225

PATIENT
  Age: 3 Month
  Sex: Male
  Weight: 3.96 kg

DRUGS (1)
  1. SYNAGIS [Suspect]
     Dates: start: 20091221, end: 20091221

REACTIONS (4)
  - DYSPNOEA [None]
  - NASOPHARYNGITIS [None]
  - OXYGEN CONSUMPTION INCREASED [None]
  - RESPIRATORY SYNCYTIAL VIRUS INFECTION [None]
